FAERS Safety Report 9648682 (Version 2)
Quarter: 2014Q1

REPORT INFORMATION
  Report Type: Spontaneous
  Country: US (occurrence: US)
  Receive Date: 20131028
  Receipt Date: 20140102
  Transmission Date: 20141002
  Serious: Yes (Other)
  Sender: FDA-Public Use
  Company Number: US-PFIZER INC-2013304043

PATIENT
  Age: 56 Year
  Sex: Female
  Weight: 69.39 kg

DRUGS (9)
  1. TOVIAZ [Suspect]
     Dosage: UNK
  2. OXYBUTYNIN [Suspect]
     Dosage: UNK
     Dates: start: 20130901
  3. HYDROCHLOROTHIAZIDE WITH TRIAMTERENE [Concomitant]
     Indication: HYPERTENSION
     Dosage: TRIAMTERENE (75MG) /HYDROCHLOROTHIAZIDE (50MG), 1X/DAY
  4. MORPHINE ER [Concomitant]
     Dosage: (50 MG AND 30 MG), 2XDAY
  5. NEXIUM [Concomitant]
     Indication: GASTROOESOPHAGEAL REFLUX DISEASE
     Dosage: 50 MG, 1X/DAY
  6. ESOMEPRAZOLE [Concomitant]
     Indication: GASTROOESOPHAGEAL REFLUX DISEASE
     Dosage: 50 MG, 1X/DAY
  7. DIAZEPAM [Concomitant]
     Dosage: UNK
  8. OXYCODONE [Concomitant]
     Dosage: UNK
  9. XELJANZ [Concomitant]
     Dosage: UNK

REACTIONS (2)
  - Bladder prolapse [Unknown]
  - Drug ineffective [Unknown]
